FAERS Safety Report 15754154 (Version 1)
Quarter: 2018Q4

REPORT INFORMATION
  Report Type: Spontaneous
  Country: US (occurrence: US)
  Receive Date: 20181206
  Receipt Date: 20181206
  Transmission Date: 20190205
  Serious: No
  Sender: FDA-Public Use
  Company Number: None

PATIENT
  Age: 3 Year
  Sex: Male

DRUGS (4)
  1. MONTELUKAST 4MG [Suspect]
     Active Substance: MONTELUKAST SODIUM
     Indication: ASTHMA
     Dates: start: 20181016, end: 20181114
  2. MONTELUKAST [Suspect]
     Active Substance: MONTELUKAST SODIUM
     Dates: start: 20181115, end: 20181119
  3. QVAR [Suspect]
     Active Substance: BECLOMETHASONE DIPROPIONATE
  4. MOMETASONE [Concomitant]
     Active Substance: MOMETASONE

REACTIONS (9)
  - Screaming [None]
  - Insomnia [None]
  - Product substitution issue [None]
  - Asthma [None]
  - Hyperhidrosis [None]
  - Crying [None]
  - Panic attack [None]
  - Sleep terror [None]
  - Abnormal behaviour [None]

NARRATIVE: CASE EVENT DATE: 20181016
